FAERS Safety Report 5310948-1 (Version None)
Quarter: 2007Q2

REPORT INFORMATION
  Report Type: 
  Country: None (occurrence: None)
  Receive Date: 20070426
  Receipt Date: 20070426
  Transmission Date: 20071010
  Serious: Yes (Other)
  Sender: FDA-Public Use
  Company Number: None

PATIENT
  Sex: Female
  Weight: 65.7716 kg

DRUGS (2)
  1. INH [Suspect]
     Indication: TUBERCULOSIS
     Dosage: 1 TAB QD PO
     Route: 048
     Dates: start: 20070117, end: 20070402
  2. TYLENOL [Concomitant]

REACTIONS (4)
  - HEPATIC ENZYME INCREASED [None]
  - JAUNDICE [None]
  - MALAISE [None]
  - RASH [None]
